FAERS Safety Report 14173858 (Version 1)
Quarter: 2017Q4

REPORT INFORMATION
  Report Type: Spontaneous
  Country: RU (occurrence: RU)
  Receive Date: 20171109
  Receipt Date: 20171109
  Transmission Date: 20180321
  Serious: Yes (Other)
  Sender: FDA-Public Use
  Company Number: RU-ASTRAZENECA-2017SE99199

PATIENT
  Age: 70 Year
  Sex: Female
  Weight: 64 kg

DRUGS (10)
  1. BETALOC ZOK [Suspect]
     Active Substance: METOPROLOL SUCCINATE
     Dosage: UNKNOWN
     Route: 048
     Dates: end: 201705
  2. BRILINTA [Suspect]
     Active Substance: TICAGRELOR
     Indication: MYOCARDIAL INFARCTION
     Route: 048
     Dates: start: 201702, end: 201707
  3. PRESTANCE [Concomitant]
     Active Substance: AMLODIPINE BESYLATE\PERINDOPRIL ARGININE
  4. ENALAPRIL [Concomitant]
     Active Substance: ENALAPRIL
  5. SIMVASTATIN. [Concomitant]
     Active Substance: SIMVASTATIN
  6. THROMBO ASS [Suspect]
     Active Substance: ASPIRIN
     Route: 065
  7. DALNEVA [Concomitant]
  8. INDAPAMIDE. [Concomitant]
     Active Substance: INDAPAMIDE
  9. NOLPAZA [Concomitant]
     Active Substance: PANTOPRAZOLE SODIUM
  10. BRILINTA [Suspect]
     Active Substance: TICAGRELOR
     Indication: MYOCARDIAL INFARCTION
     Dosage: ONE TABLET PER DAY
     Route: 048
     Dates: start: 201708

REACTIONS (7)
  - Drug dose omission [Unknown]
  - Contusion [Not Recovered/Not Resolved]
  - Blood pressure increased [Recovered/Resolved]
  - Epistaxis [Recovered/Resolved]
  - Off label use [Not Recovered/Not Resolved]
  - Gingival bleeding [Recovered/Resolved]
  - Bradycardia [Recovered/Resolved]

NARRATIVE: CASE EVENT DATE: 201702
